FAERS Safety Report 5176679-6 (Version None)
Quarter: 2006Q4

REPORT INFORMATION
  Report Type: 
  Country: None (occurrence: None)
  Receive Date: 20061218
  Receipt Date: 20061207
  Transmission Date: 20070319
  Serious: Yes (Other)
  Sender: FDA-Public Use
  Company Number: US-JNJFOC-20060806817

PATIENT
  Sex: Female
  Weight: 108.86 kg

DRUGS (5)
  1. REMICADE [Suspect]
     Route: 042
  2. REMICADE [Suspect]
     Route: 042
  3. REMICADE [Suspect]
     Route: 042
  4. REMICADE [Suspect]
     Indication: RHEUMATOID ARTHRITIS
     Route: 042
  5. PREDNISONE TAB [Concomitant]
     Indication: PANCREATITIS

REACTIONS (4)
  - ANGIONEUROTIC OEDEMA [None]
  - INFUSION RELATED REACTION [None]
  - PANCREATITIS [None]
  - SHOCK [None]
